FAERS Safety Report 5318354-0 (Version None)
Quarter: 2007Q2

REPORT INFORMATION
  Report Type: 
  Country: None (occurrence: None)
  Receive Date: 20070507
  Receipt Date: 20070424
  Transmission Date: 20071010
  Serious: Yes (Hospitalization, Other)
  Sender: FDA-Public Use
  Company Number: US-SHR-US-2007-014451

PATIENT
  Age: 48 Year
  Sex: Female

DRUGS (5)
  1. BETASERON [Suspect]
     Indication: SECONDARY PROGRESSIVE MULTIPLE SCLEROSIS
     Dosage: 8 MIU, EVERY 2D
     Route: 058
     Dates: start: 19940815
  2. ZESTORETIC [Concomitant]
  3. ATENOLOL [Concomitant]
  4. VYTORIN [Concomitant]
  5. ASPIRIN [Concomitant]

REACTIONS (4)
  - CATARACT OPERATION [None]
  - CORONARY ARTERY OCCLUSION [None]
  - INFLUENZA LIKE ILLNESS [None]
  - INJECTION SITE MASS [None]
